FAERS Safety Report 4596884-7 (Version None)
Quarter: 2005Q1

REPORT INFORMATION
  Report Type: 
  Country: None (occurrence: None)
  Receive Date: 20050225
  Receipt Date: 20050217
  Transmission Date: 20050727
  Serious: Yes (Other)
  Sender: FDA-Public Use
  Company Number: 2005-02-1153

PATIENT
  Age: 61 Year
  Sex: Female

DRUGS (6)
  1. PEG-INTRON [Suspect]
     Indication: HEPATITIS C
     Dosage: 64 MCG QWK; SUBCUTANEOUS
     Route: 058
     Dates: start: 20040117
  2. REBETOL [Suspect]
     Indication: HEPATITIS C
     Dosage: 800 MG QD; ORAL
     Route: 048
     Dates: start: 20040117
  3. ALTACE [Concomitant]
  4. COREG [Concomitant]
  5. CLONIDINE [Concomitant]
  6. MULTI-VITAMIN [Concomitant]

REACTIONS (8)
  - BLINDNESS UNILATERAL [None]
  - DYSPNOEA [None]
  - FATIGUE [None]
  - IMPAIRED DRIVING ABILITY [None]
  - PHARMACEUTICAL PRODUCT COMPLAINT [None]
  - RETINAL DETACHMENT [None]
  - RETINOPATHY HAEMORRHAGIC [None]
  - VISION BLURRED [None]
